FAERS Safety Report 4598274-X (Version None)
Quarter: 2005Q1

REPORT INFORMATION
  Report Type: 
  Country: None (occurrence: None)
  Receive Date: 20050204
  Receipt Date: 20040527
  Transmission Date: 20050727
  Serious: Yes (Other)
  Sender: FDA-Public Use
  Company Number: PHEH2004US05605

PATIENT
  Sex: Female

DRUGS (2)
  1. CLOZARIL [Suspect]
     Indication: MAJOR DEPRESSION
     Dosage: 75 MG/DAY, ORAL
     Route: 048
     Dates: start: 20040401, end: 20040519
  2. CLOZARIL [Suspect]
     Dosage: ORAL
     Route: 048
     Dates: start: 20040521

REACTIONS (6)
  - CARDIAC FAILURE CONGESTIVE [None]
  - CARDITIS [None]
  - DYSPNOEA [None]
  - HEART RATE INCREASED [None]
  - LEUKOCYTOSIS [None]
  - OEDEMA PERIPHERAL [None]
